FAERS Safety Report 14498973 (Version 1)
Quarter: 2018Q1

REPORT INFORMATION
  Report Type: Other
  Country: NL (occurrence: NL)
  Receive Date: 20180207
  Receipt Date: 20180207
  Transmission Date: 20180509
  Serious: Yes (Hospitalization, Other)
  Sender: FDA-Public Use
  Company Number: NL-TAKEDA-2018TUS003089

PATIENT
  Age: 56 Year
  Sex: Male
  Weight: 103 kg

DRUGS (8)
  1. ENALAPRIL [Concomitant]
     Active Substance: ENALAPRIL
     Dosage: 1DD1
  2. ALLOPURINOL. [Concomitant]
     Active Substance: ALLOPURINOL
     Dosage: 2DD1
  3. PANTOPRAZOL [Concomitant]
     Active Substance: PANTOPRAZOLE SODIUM
     Dosage: 1DD1
  4. ENTYVIO [Suspect]
     Active Substance: VEDOLIZUMAB
     Indication: COLITIS ULCERATIVE
     Dosage: 1 KEER PER 8 WEKEN
     Route: 065
     Dates: start: 20170301
  5. PENTASA [Concomitant]
     Active Substance: MESALAMINE
     Dosage: 2DD 2 GRAM
  6. PRAVASTATIN. [Concomitant]
     Active Substance: PRAVASTATIN
     Dosage: 1DD1
  7. METFORMINE [Concomitant]
     Active Substance: METFORMIN HYDROCHLORIDE
     Dosage: 2DD1
  8. CLOPIDOGREL [Concomitant]
     Active Substance: CLOPIDOGREL BISULFATE
     Dosage: 1DD1

REACTIONS (1)
  - Liver abscess [Not Recovered/Not Resolved]

NARRATIVE: CASE EVENT DATE: 20171129
